FAERS Safety Report 10664804 (Version 3)
Quarter: 2015Q1

REPORT INFORMATION
  Report Type: Spontaneous
  Country: CA (occurrence: CA)
  Receive Date: 20141219
  Receipt Date: 20150205
  Transmission Date: 20150720
  Serious: Yes (Hospitalization, Other)
  Sender: FDA-Public Use
  Company Number: CA-GLAXOSMITHKLINE-A1082552A

PATIENT
  Age: 78 Year
  Sex: Female
  Weight: 48 kg

DRUGS (1)
  1. BENLYSTA [Suspect]
     Active Substance: BELIMUMAB
     Dosage: 500 MG, Z (EVERY 4 WEEKS)
     Route: 042
     Dates: start: 2012

REACTIONS (11)
  - Erythema [Unknown]
  - Stomatitis [Recovering/Resolving]
  - Fatigue [Recovering/Resolving]
  - Haematochezia [Not Recovered/Not Resolved]
  - Localised infection [Unknown]
  - Suture insertion [Unknown]
  - Pain in extremity [Unknown]
  - Injury [Unknown]
  - Skin warm [Unknown]
  - Fall [Unknown]
  - Diarrhoea [Recovering/Resolving]

NARRATIVE: CASE EVENT DATE: 20141121
